FAERS Safety Report 19278373 (Version 1)
Quarter: 2021Q2

REPORT INFORMATION
  Report Type: Spontaneous
  Country: PT (occurrence: PT)
  Receive Date: 20210520
  Receipt Date: 20210520
  Transmission Date: 20210717
  Serious: Yes (Other)
  Sender: FDA-Public Use
  Company Number: PT-PFIZER INC-2021535748

PATIENT
  Age: 64 Year
  Sex: Male

DRUGS (2)
  1. CYTARABINE. [Suspect]
     Active Substance: CYTARABINE
     Indication: ACUTE MYELOID LEUKAEMIA
     Dosage: 20 MG/M2, CYCLIC  (20 MG/M2/DAY; LOW?DOSE? 5 CYCLES) 10 DAYS PER CYCLE
     Route: 058
  2. GLASDEGIB [Suspect]
     Active Substance: GLASDEGIB
     Indication: ACUTE MYELOID LEUKAEMIA
     Dosage: 100 MG, CYCLIC (C (28 DAYS DAILY, 5 CYCLES)
     Route: 048

REACTIONS (2)
  - Febrile neutropenia [Unknown]
  - Haemorrhagic stroke [Unknown]
